FAERS Safety Report 14264987 (Version 1)
Quarter: 2017Q4

REPORT INFORMATION
  Report Type: Spontaneous
  Country: NO (occurrence: NO)
  Receive Date: 20171208
  Receipt Date: 20171208
  Transmission Date: 20180321
  Serious: Yes (Disabling, Other)
  Sender: FDA-Public Use
  Company Number: NO-SA-2017SA239941

PATIENT
  Age: 66 Year
  Sex: Female

DRUGS (8)
  1. IMOVANE [Concomitant]
     Active Substance: ZOPICLONE
     Route: 048
  2. PLAVIX [Suspect]
     Active Substance: CLOPIDOGREL BISULFATE
     Indication: CEREBRAL INFARCTION
     Route: 048
     Dates: start: 20130826, end: 20150813
  3. PARACET [Concomitant]
     Active Substance: ACETAMINOPHEN
     Route: 048
  4. DIOVAN COMP [Concomitant]
     Active Substance: HYDROCHLOROTHIAZIDE\VALSARTAN
     Indication: HYPERTENSION
     Route: 048
  5. ADALAT [Concomitant]
     Active Substance: NIFEDIPINE
     Indication: HYPERTENSION
     Route: 048
  6. LIPITOR [Suspect]
     Active Substance: ATORVASTATIN CALCIUM
     Indication: HYPERCHOLESTEROLAEMIA
     Route: 048
     Dates: start: 20131125, end: 20150813
  7. LIPITOR [Suspect]
     Active Substance: ATORVASTATIN CALCIUM
     Indication: HYPERCHOLESTEROLAEMIA
     Route: 048
     Dates: start: 20130826, end: 20131124
  8. VIVAL [Concomitant]
     Active Substance: DIAZEPAM
     Indication: RESTLESSNESS
     Route: 048

REACTIONS (11)
  - Skin disorder [Recovering/Resolving]
  - Psoriasis [Recovering/Resolving]
  - Pain in extremity [Recovering/Resolving]
  - Pain [Recovered/Resolved]
  - Pain [Recovering/Resolving]
  - Myalgia [Recovered/Resolved]
  - Impaired quality of life [Recovering/Resolving]
  - Lyme disease [Recovering/Resolving]
  - Eczema [Recovering/Resolving]
  - Rash pruritic [Recovering/Resolving]
  - Haematoma [Recovering/Resolving]

NARRATIVE: CASE EVENT DATE: 20140301
